FAERS Safety Report 9588403 (Version 1)
Quarter: 2013Q4

REPORT INFORMATION
  Report Type: Spontaneous
  Country: US (occurrence: US)
  Receive Date: 20131003
  Receipt Date: 20131003
  Transmission Date: 20140711
  Serious: No
  Sender: FDA-Public Use
  Company Number: US-AMGEN-USASP2012063687

PATIENT
  Age: 49 Year
  Sex: Male
  Weight: 81.18 kg

DRUGS (11)
  1. ENBREL [Suspect]
     Indication: PRODUCT USED FOR UNKNOWN INDICATION
     Dosage: 50 MG, QWK
     Route: 058
     Dates: start: 20120613
  2. METHOTREXATE [Concomitant]
     Dosage: 2.5 MG, UNK
  3. SIMVASTATIN [Concomitant]
     Dosage: 5 MG, UNK
  4. FENOFIBRATE [Concomitant]
     Dosage: 67 MG, UNK
  5. FOLIC ACID [Concomitant]
     Dosage: UNK
  6. OMEPRAZOLE [Concomitant]
     Dosage: 20 MG, UNK
  7. VITAMIN D                          /00107901/ [Concomitant]
     Dosage: UNK
  8. LORATADINE [Concomitant]
     Dosage: 10 MG, UNK
  9. FLAXSEED OIL [Concomitant]
     Dosage: 1000 MG, UNK
  10. FISH OIL [Concomitant]
     Dosage: UNK
  11. ASTRAGALUS GUMMIFER [Concomitant]
     Dosage: 250 MG, UNK

REACTIONS (2)
  - Hepatic enzyme increased [Unknown]
  - Joint swelling [Unknown]
